FAERS Safety Report 7238575-X (Version None)
Quarter: 2011Q1

REPORT INFORMATION
  Report Type: 
  Country: None (occurrence: None)
  Receive Date: 20110121
  Receipt Date: 20110113
  Transmission Date: 20110831
  Serious: Yes (Life-Threatening, Hospitalization)
  Sender: FDA-Public Use
  Company Number: JP-JNJFOC-20101202765

PATIENT
  Age: 73 Year
  Sex: Female

DRUGS (9)
  1. UNKNOWN MEDICATION [Suspect]
     Indication: MICTURITION DISORDER
     Route: 065
  2. UNKNOWN MEDICATION [Suspect]
     Indication: MALAISE
     Route: 065
  3. CHOREITOU [Suspect]
     Indication: DYSURIA
     Route: 048
  4. CALONAL [Suspect]
     Indication: RESPIRATORY TRACT INFLAMMATION
     Route: 048
  5. SHOUSEIRYUUTOU [Suspect]
     Indication: UPPER RESPIRATORY TRACT INFLAMMATION
     Route: 048
  6. CRAVIT [Suspect]
     Indication: UPPER RESPIRATORY TRACT INFLAMMATION
     Route: 048
  7. KAMI-SHOYO-SAN [Suspect]
     Indication: MALAISE
     Route: 048
  8. CRAVIT [Suspect]
     Indication: MICTURITION DISORDER
     Route: 048
  9. CHOREITOU [Suspect]
     Indication: MICTURITION DISORDER
     Route: 048

REACTIONS (2)
  - LIVER DISORDER [None]
  - ASCITES [None]
